FAERS Safety Report 20916517 (Version 2)
Quarter: 2022Q4

REPORT INFORMATION
  Report Type: Report from Study
  Country: US (occurrence: US)
  Receive Date: 20220605
  Receipt Date: 20221020
  Transmission Date: 20230113
  Serious: Yes (Other)
  Sender: FDA-Public Use
  Company Number: US-BRISTOL-MYERS SQUIBB COMPANY-2022-036292

PATIENT
  Age: 76 Year
  Sex: Female
  Weight: 56.699 kg

DRUGS (17)
  1. POMALYST [Suspect]
     Active Substance: POMALIDOMIDE
     Indication: Plasma cell myeloma
     Dosage: 1 CAPSULE, DAILY, DAY 1 TO 21 EVERY 28 DAY CYCLE?EXPIRY DATE-28 FEB 2026
     Route: 048
     Dates: start: 20191217
  2. POMALYST [Suspect]
     Active Substance: POMALIDOMIDE
     Indication: Anaemia
     Route: 065
  3. POMALYST [Suspect]
     Active Substance: POMALIDOMIDE
     Indication: Iron deficiency
  4. POMALYST [Suspect]
     Active Substance: POMALIDOMIDE
     Indication: Illness
  5. WARFARIN SODIUM [Concomitant]
     Active Substance: WARFARIN SODIUM
  6. METOPROLOL TARTRATE [Concomitant]
     Active Substance: METOPROLOL TARTRATE
  7. LISINOPRIL [Concomitant]
     Active Substance: LISINOPRIL
  8. ACYCLOVIR [Concomitant]
     Active Substance: ACYCLOVIR
  9. IRON [Concomitant]
     Active Substance: IRON
  10. CALCIUM\CHOLECALCIFEROL [Concomitant]
     Active Substance: CALCIUM\CHOLECALCIFEROL
     Dosage: 12.5 TABLET-ER
  11. VITAMINS [Concomitant]
     Active Substance: VITAMINS
  12. OMEPRAZOLE [Concomitant]
     Active Substance: OMEPRAZOLE
  13. DARZALEX [Concomitant]
     Active Substance: DARATUMUMAB
     Dosage: 100 MG/5ML VIAL
  14. ISOSORBIDE MONONITRATE [Concomitant]
     Active Substance: ISOSORBIDE MONONITRATE
     Dosage: ER
  15. NITROGLYCERIN [Concomitant]
     Active Substance: NITROGLYCERIN
     Dosage: PRN
     Route: 060
  16. ATORVASTATIN [Concomitant]
     Active Substance: ATORVASTATIN
  17. CALCIUM [Concomitant]
     Active Substance: CALCIUM

REACTIONS (3)
  - Cataract [Unknown]
  - Bone disorder [Unknown]
  - Fatigue [Unknown]

NARRATIVE: CASE EVENT DATE: 20221013
